FAERS Safety Report 22241856 (Version 1)
Quarter: 2023Q2

REPORT INFORMATION
  Report Type: Spontaneous
  Country: US (occurrence: US)
  Receive Date: 20230421
  Receipt Date: 20230421
  Transmission Date: 20230722
  Serious: Yes (Other)
  Sender: FDA-Public Use
  Company Number: US-002147023-NVSC2023US088660

PATIENT
  Sex: Male

DRUGS (1)
  1. VOTRIENT [Suspect]
     Active Substance: PAZOPANIB HYDROCHLORIDE
     Indication: Metastases to kidney
     Dosage: 800 MG, QD (ONCE DAILY)
     Route: 048
     Dates: start: 20230323, end: 20230415

REACTIONS (4)
  - Haematemesis [Unknown]
  - Choking [Unknown]
  - Vomiting [Unknown]
  - Dysphagia [Unknown]
